FAERS Safety Report 19685732 (Version 7)
Quarter: 2022Q3

REPORT INFORMATION
  Report Type: Report from Study
  Country: US (occurrence: US)
  Receive Date: 20210811
  Receipt Date: 20220715
  Transmission Date: 20221027
  Serious: Yes (Hospitalization)
  Sender: FDA-Public Use
  Company Number: US-TAKEDA-2021TUS048535

PATIENT
  Sex: Female

DRUGS (4)
  1. TEDUGLUTIDE [Suspect]
     Active Substance: TEDUGLUTIDE
     Indication: Product used for unknown indication
     Dosage: UNK
     Route: 058
     Dates: start: 20210306
  2. TEDUGLUTIDE [Suspect]
     Active Substance: TEDUGLUTIDE
     Indication: Product used for unknown indication
     Dosage: UNK
     Route: 058
     Dates: start: 20210306
  3. TEDUGLUTIDE [Suspect]
     Active Substance: TEDUGLUTIDE
     Indication: Product used for unknown indication
     Dosage: UNK
     Route: 058
     Dates: start: 20210306
  4. TEDUGLUTIDE [Suspect]
     Active Substance: TEDUGLUTIDE
     Indication: Product used for unknown indication
     Dosage: UNK
     Route: 058
     Dates: start: 20210306

REACTIONS (10)
  - Asthenia [Unknown]
  - Infection [Recovering/Resolving]
  - General physical health deterioration [Not Recovered/Not Resolved]
  - Fluid retention [Unknown]
  - Muscular weakness [Recovering/Resolving]
  - Weight increased [Recovering/Resolving]
  - Dehydration [Recovering/Resolving]
  - Haemoglobin decreased [Recovering/Resolving]
  - Ill-defined disorder [Recovering/Resolving]
  - Therapy interrupted [Not Recovered/Not Resolved]
